FAERS Safety Report 5854441-6 (Version None)
Quarter: 2008Q3

REPORT INFORMATION
  Report Type: 
  Country: None (occurrence: None)
  Receive Date: 20080822
  Receipt Date: 20080811
  Transmission Date: 20090109
  Serious: Yes (Other)
  Sender: FDA-Public Use
  Company Number: FR-PFIZER INC-2008045004

PATIENT
  Sex: Female
  Weight: 49 kg

DRUGS (1)
  1. CHANTIX [Suspect]
     Indication: SMOKING CESSATION THERAPY
     Dosage: DAILY DOSE:2MG
     Route: 048
     Dates: start: 20080102, end: 20080128

REACTIONS (4)
  - CONTUSION [None]
  - PANIC ATTACK [None]
  - SOMNAMBULISM [None]
  - SUICIDAL IDEATION [None]
